FAERS Safety Report 16990390 (Version 1)
Quarter: 2019Q4

REPORT INFORMATION
  Report Type: Spontaneous
  Country: US (occurrence: US)
  Receive Date: 20191104
  Receipt Date: 20191104
  Transmission Date: 20200122
  Serious: No
  Sender: FDA-Public Use
  Company Number: US-PFIZER INC-2019474706

PATIENT
  Age: 51 Year
  Sex: Female
  Weight: 63.49 kg

DRUGS (5)
  1. IBRANCE [Suspect]
     Active Substance: PALBOCICLIB
     Indication: BREAST CANCER METASTATIC
     Dosage: 75 MG, CYCLIC [DAILY FOR 21 OUT OF 28 DAYS]
     Route: 048
     Dates: start: 2018
  2. SPIRONOLACTONE. [Concomitant]
     Active Substance: SPIRONOLACTONE
     Dosage: UNK
  3. LETROZOLE. [Concomitant]
     Active Substance: LETROZOLE
     Dosage: 2.5 MG, UNK
  4. CAPECITABINE. [Suspect]
     Active Substance: CAPECITABINE
     Dosage: 150 MG, UNK
  5. VITAMIN D [Concomitant]
     Active Substance: VITAMIN D NOS
     Dosage: UNK

REACTIONS (1)
  - Palmar-plantar erythrodysaesthesia syndrome [Unknown]
